FAERS Safety Report 18873655 (Version 2)
Quarter: 2022Q2

REPORT INFORMATION
  Report Type: Spontaneous
  Country: DE (occurrence: DE)
  Receive Date: 20210210
  Receipt Date: 20220615
  Transmission Date: 20220721
  Serious: Yes (Hospitalization)
  Sender: FDA-Public Use
  Company Number: DE-NOVARTISPH-NVSC2021DE028092

PATIENT
  Age: 74 Year
  Sex: Female
  Weight: 76 kg

DRUGS (3)
  1. EXELON [Suspect]
     Active Substance: RIVASTIGMINE TARTRATE
     Indication: Dementia Alzheimer^s type
     Dosage: 4.6 MG, Q24H (PATCH 5 CM2)
     Route: 062
  2. EXELON [Suspect]
     Active Substance: RIVASTIGMINE TARTRATE
     Dosage: 9.6 MG, QD (PATCH 10 CM2)
     Route: 062
  3. EXELON [Suspect]
     Active Substance: RIVASTIGMINE TARTRATE
     Dosage: 4.6 MG, QD (PATCH 5 CM2) (2 PATCHES)
     Route: 062

REACTIONS (5)
  - Fall [Unknown]
  - Embolism [Unknown]
  - Speech disorder [Not Recovered/Not Resolved]
  - Diarrhoea [Recovered/Resolved]
  - Weight increased [Unknown]
